FAERS Safety Report 9856224 (Version 2)
Quarter: 2014Q1

REPORT INFORMATION
  Report Type: Spontaneous
  Country: JP (occurrence: JP)
  Receive Date: 20140130
  Receipt Date: 20140214
  Transmission Date: 20141002
  Serious: Yes (Death, Hospitalization, Other)
  Sender: FDA-Public Use
  Company Number: JP-PFIZER INC-2014025977

PATIENT
  Age: 70 Year
  Sex: Male

DRUGS (5)
  1. ALDACTONE A [Suspect]
     Dosage: UNK
     Route: 048
  2. MEXITIL [Suspect]
     Dosage: 200 MG, DAILY
     Route: 048
  3. PIMOBENDAN [Concomitant]
     Dosage: 2.5 MG, DAILY
     Route: 048
  4. LASIX [Concomitant]
     Dosage: 20 MG, DAILY
     Route: 048
  5. DIAMOX [Concomitant]
     Dosage: 500 MG, DAILY
     Route: 048

REACTIONS (2)
  - Death [Fatal]
  - Eosinophilic pneumonia [Unknown]
